FAERS Safety Report 10224038 (Version 1)
Quarter: 2014Q2

REPORT INFORMATION
  Report Type: Spontaneous
  Country: US (occurrence: US)
  Receive Date: 20140609
  Receipt Date: 20140609
  Transmission Date: 20141212
  Serious: No
  Sender: FDA-Public Use
  Company Number: US-DRREDDYS-USA/USA/14/0039450

PATIENT
  Age: 54 Year
  Sex: Female

DRUGS (2)
  1. MUCINEX ALLERGY (FEXOFENADINE) [Suspect]
     Indication: HYPERSENSITIVITY
     Route: 048
     Dates: start: 20140320, end: 20140330
  2. MUCINEX EXPECTORANT [Concomitant]
     Indication: HYPERSENSITIVITY
     Route: 065

REACTIONS (4)
  - Oropharyngeal pain [Recovered/Resolved]
  - Dry throat [Unknown]
  - Drug ineffective [Unknown]
  - Product quality issue [Unknown]
